FAERS Safety Report 7290045-9 (Version None)
Quarter: 2011Q1

REPORT INFORMATION
  Report Type: 
  Country: None (occurrence: None)
  Receive Date: 20110214
  Receipt Date: 20110203
  Transmission Date: 20110831
  Serious: Yes (Other)
  Sender: FDA-Public Use
  Company Number: US-ASTRAZENECA-2011SE06360

PATIENT
  Age: 43 Year
  Sex: Female

DRUGS (3)
  1. CRESTOR [Concomitant]
  2. NEXIUM [Suspect]
     Route: 048
  3. TOPROL-XL [Concomitant]

REACTIONS (1)
  - CEREBROVASCULAR ACCIDENT [None]
